FAERS Safety Report 13734785 (Version 4)
Quarter: 2017Q4

REPORT INFORMATION
  Report Type: Spontaneous
  Country: US (occurrence: US)
  Receive Date: 20170710
  Receipt Date: 20171128
  Transmission Date: 20180320
  Serious: Yes (Hospitalization, Other)
  Sender: FDA-Public Use
  Company Number: US-B.I. PHARMACEUTICALS,INC./RIDGEFIELD-2017-BI-038319

PATIENT
  Age: 68 Year
  Sex: Male
  Weight: 92.98 kg

DRUGS (17)
  1. PRADAXA [Suspect]
     Active Substance: DABIGATRAN ETEXILATE MESYLATE
     Dates: start: 20130822, end: 20140722
  2. SUNSCREEN [Concomitant]
     Active Substance: HOMOSALATE\OCTINOXATE\OCTISALATE\OXYBENZONE\TITANIUM DIOXIDE
     Indication: PROPHYLAXIS AGAINST SOLAR RADIATION
     Dosage: APPLY LIBERAL AMOUNT TO AFFECTED AREA(S)
     Route: 065
  3. SYNTHROID [Concomitant]
     Active Substance: LEVOTHYROXINE SODIUM
     Indication: THYROID DISORDER
     Dosage: 0.088MG TAB TAKE ONE ACTIVE TABLET BY MOUTH
     Route: 048
     Dates: start: 2009
  4. METOPROLOL TARTRATE. [Concomitant]
     Active Substance: METOPROLOL TARTRATE
     Indication: PRODUCT USED FOR UNKNOWN INDICATION
     Route: 065
     Dates: start: 2009
  5. GLIPIZIDE. [Concomitant]
     Active Substance: GLIPIZIDE
     Indication: PRODUCT USED FOR UNKNOWN INDICATION
     Route: 065
     Dates: start: 2016
  6. OXYBENZONE W/PADIMATE [Concomitant]
     Indication: PROPHYLAXIS AGAINST SOLAR RADIATION
     Dosage: APPLY 1 APPLICATION TO AFFECTED AREA(S) EVERY 2 HOURS
     Route: 065
  7. PROPAFENONE HCL [Concomitant]
     Active Substance: PROPAFENONE HYDROCHLORIDE
     Indication: HEART RATE ABNORMAL
     Route: 048
     Dates: start: 2009
  8. FINASTERIDE. [Concomitant]
     Active Substance: FINASTERIDE
     Indication: PROSTATIC DISORDER
     Route: 048
  9. LISINOPRIL. [Concomitant]
     Active Substance: LISINOPRIL
     Indication: BLOOD PRESSURE ABNORMAL
     Dosage: 10MG TAB TAKE ONE TABLET BY MOUTH DAILY
     Route: 048
     Dates: start: 2009
  10. AMMONIUM LACTATE. [Concomitant]
     Active Substance: AMMONIUM LACTATE
     Indication: DRY SKIN
     Dosage: 12% LOTION APPLY LOTION TO AFFECTED AREA(S) TWICE A DAY
     Route: 065
  11. PRADAXA [Suspect]
     Active Substance: DABIGATRAN ETEXILATE MESYLATE
     Route: 048
     Dates: start: 20140712
  12. LISINOPRIL. [Concomitant]
     Active Substance: LISINOPRIL
     Indication: HEART RATE ABNORMAL
  13. SIMVASTATIN. [Concomitant]
     Active Substance: SIMVASTATIN
     Indication: BLOOD CHOLESTEROL ABNORMAL
     Dosage: ONE-HALF TABLET BY MOUTH DAILY AT BEDTIME
     Route: 048
     Dates: start: 2009
  14. ASPIRIN. [Concomitant]
     Active Substance: ASPIRIN
     Indication: PRODUCT USED FOR UNKNOWN INDICATION
     Dosage: ASPIRIN ON A REGULAR BASIS (SUCH AS ONCE A DAY FOR MORE THAN TWO WEEKS)
     Route: 065
     Dates: start: 2014
  15. PRADAXA [Suspect]
     Active Substance: DABIGATRAN ETEXILATE MESYLATE
     Indication: ATRIAL FIBRILLATION
     Dosage: TAKE WITH A FULL GLASS OF WATER.
     Route: 048
     Dates: start: 20130816
  16. METFORMIN HCL [Concomitant]
     Active Substance: METFORMIN HYDROCHLORIDE
     Indication: DIABETES MELLITUS
     Route: 048
     Dates: start: 2009, end: 2016
  17. LEVOTHYROXINE. [Concomitant]
     Active Substance: LEVOTHYROXINE
     Indication: PRODUCT USED FOR UNKNOWN INDICATION
     Route: 065

REACTIONS (2)
  - Haematuria [Unknown]
  - Urinary retention [Unknown]

NARRATIVE: CASE EVENT DATE: 20140722
